FAERS Safety Report 18645979 (Version 6)
Quarter: 2021Q2

REPORT INFORMATION
  Report Type: Spontaneous
  Country: CA (occurrence: CA)
  Receive Date: 20201221
  Receipt Date: 20210601
  Transmission Date: 20210717
  Serious: Yes (Other)
  Sender: FDA-Public Use
  Company Number: CA-BIOMARINAP-CA-2020-133974

PATIENT
  Age: 10 Year
  Sex: Male
  Weight: 22.95 kg

DRUGS (7)
  1. EMLA [Concomitant]
     Active Substance: LIDOCAINE\PRILOCAINE
     Indication: PREMEDICATION
     Dosage: UNK, SINGLE
     Route: 061
  2. ADVIL [Concomitant]
     Active Substance: IBUPROFEN
     Indication: PYREXIA
  3. TYLENOL [Concomitant]
     Active Substance: ACETAMINOPHEN
     Indication: PAIN
     Dosage: UNK, PRN
     Route: 065
  4. VIMIZIM [Suspect]
     Active Substance: ELOSULFASE ALFA
     Indication: MUCOPOLYSACCHARIDOSIS IV
     Dosage: 2 MILLIGRAM/KILOGRAM, QW
     Route: 042
     Dates: start: 20150820
  5. ADVIL [Concomitant]
     Active Substance: IBUPROFEN
     Indication: PAIN
     Dosage: UNK, PRN
     Route: 065
  6. TYLENOL [Concomitant]
     Active Substance: ACETAMINOPHEN
     Indication: PYREXIA
  7. BACLOFEN. [Concomitant]
     Active Substance: BACLOFEN
     Indication: PRODUCT USED FOR UNKNOWN INDICATION
     Dosage: UNK
     Route: 065
     Dates: start: 2017

REACTIONS (6)
  - Cervical cord compression [Unknown]
  - Muscular weakness [Not Recovered/Not Resolved]
  - Gait disturbance [Unknown]
  - Spinal cord compression [Not Recovered/Not Resolved]
  - Nerve compression [Not Recovered/Not Resolved]
  - Vascular access complication [Unknown]

NARRATIVE: CASE EVENT DATE: 2020
